FAERS Safety Report 20708726 (Version 1)
Quarter: 2022Q2

REPORT INFORMATION
  Report Type: Report from Study
  Country: US (occurrence: US)
  Receive Date: 20220414
  Receipt Date: 20220414
  Transmission Date: 20220721
  Serious: Yes (Hospitalization, Other)
  Sender: FDA-Public Use
  Company Number: US-JNJFOC-20220415255

PATIENT
  Age: 53 Year
  Sex: Female

DRUGS (6)
  1. DARATUMUMAB [Suspect]
     Active Substance: DARATUMUMAB
     Indication: Plasma cell myeloma
     Route: 048
     Dates: start: 20210315, end: 20210315
  2. POMALYST [Suspect]
     Active Substance: POMALIDOMIDE
     Indication: Plasma cell myeloma
     Route: 048
     Dates: start: 20210315, end: 20210315
  3. DEXAMETHASONE [Suspect]
     Active Substance: DEXAMETHASONE
     Indication: Plasma cell myeloma
     Route: 065
     Dates: start: 20210315, end: 20210315
  4. NEUPOGEN [Concomitant]
     Active Substance: FILGRASTIM
     Indication: Neutrophil count
     Route: 058
     Dates: start: 20210331, end: 20210402
  5. POTASSIUM PHOSPHATE MONOBASIC;SODIUM PHOSPHATE MONOBASIC (ANHYDROUS) [Concomitant]
     Indication: Electrolyte substitution therapy
     Route: 065
     Dates: start: 20210401, end: 20210401
  6. MAGNESIUM OXIDE [Concomitant]
     Active Substance: MAGNESIUM OXIDE
     Indication: Electrolyte substitution therapy
     Route: 065
     Dates: start: 20210401, end: 20210401

REACTIONS (3)
  - Febrile neutropenia [Recovered/Resolved]
  - Off label use [Unknown]
  - Product use issue [Unknown]

NARRATIVE: CASE EVENT DATE: 20210315
